FAERS Safety Report 7302658-6 (Version None)
Quarter: 2011Q1

REPORT INFORMATION
  Report Type: 
  Country: None (occurrence: None)
  Receive Date: 20110218
  Receipt Date: 20110209
  Transmission Date: 20110831
  Serious: Yes (Hospitalization, Other)
  Sender: FDA-Public Use
  Company Number: FR-ASTRAZENECA-2011SE08133

PATIENT
  Age: 33 Year
  Sex: Female

DRUGS (6)
  1. REMICADE [Suspect]
     Indication: PROCTOCOLITIS
     Route: 042
     Dates: start: 20090813, end: 20090827
  2. COLOFOAM [Suspect]
     Indication: PROCTOCOLITIS
     Route: 054
     Dates: start: 20090625
  3. OROCAL [Suspect]
     Indication: PROPHYLAXIS
     Route: 065
     Dates: start: 20090625
  4. SOLUPRED [Suspect]
     Indication: PROCTOCOLITIS
     Route: 048
     Dates: start: 20090625
  5. NEXIUM [Suspect]
     Indication: PROPHYLAXIS
     Route: 048
     Dates: start: 20090625
  6. FIVASA [Suspect]
     Indication: PROCTOCOLITIS
     Route: 048

REACTIONS (6)
  - DRUG EXPOSURE DURING PREGNANCY [None]
  - LISTERIOSIS [None]
  - THREATENED LABOUR [None]
  - ABORTION SPONTANEOUS [None]
  - STILLBIRTH [None]
  - PREMATURE BABY [None]
